FAERS Safety Report 9921048 (Version 3)
Quarter: 2014Q1

REPORT INFORMATION
  Report Type: Spontaneous
  Country: JP (occurrence: JP)
  Receive Date: 20140225
  Receipt Date: 20140313
  Transmission Date: 20141002
  Serious: Yes (Hospitalization, Other)
  Sender: FDA-Public Use
  Company Number: JP-AMGEN-JPNSP2014012572

PATIENT
  Age: 74 Year
  Sex: Female

DRUGS (4)
  1. ENBREL [Suspect]
     Indication: RHEUMATOID ARTHRITIS
     Dosage: 25 MG, FREQUENCY UNKNOWN
     Route: 058
     Dates: start: 201302, end: 20140114
  2. ENBREL [Suspect]
     Dosage: UNK
     Route: 065
  3. RHEUMATREX /00113802/ [Suspect]
     Indication: RHEUMATOID ARTHRITIS
     Dosage: 6 MG, WEEKLY
     Route: 048
     Dates: start: 201112, end: 201205
  4. RHEUMATREX /00113802/ [Suspect]
     Dosage: 8 MG, WEEKLY
     Route: 048
     Dates: start: 201205, end: 20140114

REACTIONS (1)
  - Herpes zoster [Recovering/Resolving]
